FAERS Safety Report 7163905-7 (Version None)
Quarter: 2010Q4

REPORT INFORMATION
  Report Type: 
  Country: None (occurrence: None)
  Receive Date: 20101215
  Receipt Date: 20101202
  Transmission Date: 20110411
  Serious: Yes (Other)
  Sender: FDA-Public Use
  Company Number: BR-AMGEN-BRASP2010008541

PATIENT

DRUGS (1)
  1. ENBREL [Suspect]
     Indication: PRODUCT USED FOR UNKNOWN INDICATION
     Dosage: 50 MG, UNK
     Route: 058
     Dates: start: 20090501

REACTIONS (7)
  - APPLICATION SITE ERYTHEMA [None]
  - DIZZINESS [None]
  - HYPERTENSIVE CRISIS [None]
  - JOINT SWELLING [None]
  - MOBILITY DECREASED [None]
  - PRURITUS [None]
  - RHEUMATOID ARTHRITIS [None]
